FAERS Safety Report 14900008 (Version 1)
Quarter: 2018Q2

REPORT INFORMATION
  Report Type: Spontaneous
  Country: US (occurrence: US)
  Receive Date: 20180516
  Receipt Date: 20180516
  Transmission Date: 20180711
  Serious: Yes (Other)
  Sender: FDA-Public Use
  Company Number: US-ROCHE-2123141

PATIENT
  Sex: Female
  Weight: 68.1 kg

DRUGS (3)
  1. RITUXAN [Suspect]
     Active Substance: RITUXIMAB
     Route: 042
     Dates: start: 2014
  2. RITUXAN [Suspect]
     Active Substance: RITUXIMAB
     Indication: RHEUMATOID ARTHRITIS
     Dosage: TWO DOSES OF 500 U ;ONGOING: NO
     Route: 042
     Dates: start: 2011
  3. RITUXAN [Suspect]
     Active Substance: RITUXIMAB
     Route: 042
     Dates: start: 2018

REACTIONS (8)
  - Pain [Unknown]
  - Peripheral swelling [Unknown]
  - Inflammation [Unknown]
  - Body height decreased [Unknown]
  - Diabetes mellitus [Not Recovered/Not Resolved]
  - Drug ineffective [Unknown]
  - Musculoskeletal stiffness [Unknown]
  - Swelling [Unknown]

NARRATIVE: CASE EVENT DATE: 2018
